FAERS Safety Report 19968313 (Version 1)
Quarter: 2021Q4

REPORT INFORMATION
  Report Type: Spontaneous
  Country: US (occurrence: US)
  Receive Date: 20211014
  Receipt Date: 20211014
  Transmission Date: 20220303
  Serious: Yes (Hospitalization)
  Sender: FDA-Public Use
  Company Number: None

PATIENT
  Age: 71 Year
  Sex: Male
  Weight: 77.2 kg

DRUGS (1)
  1. CYTARABINE [Suspect]
     Active Substance: CYTARABINE
     Dates: end: 20210319

REACTIONS (17)
  - Fall [None]
  - Head injury [None]
  - Pyrexia [None]
  - Fatigue [None]
  - Hypophagia [None]
  - Pleural effusion [None]
  - Pneumonia [None]
  - SARS-CoV-2 test positive [None]
  - White blood cell count decreased [None]
  - Hypoxia [None]
  - Anaemia [None]
  - Hypokalaemia [None]
  - Sepsis [None]
  - Lung infiltration [None]
  - Basal ganglia infarction [None]
  - Subdural haematoma [None]
  - Cerebrovascular accident [None]

NARRATIVE: CASE EVENT DATE: 20210322
